FAERS Safety Report 8572156-0 (Version None)
Quarter: 2012Q3

REPORT INFORMATION
  Report Type: 
  Country: None (occurrence: None)
  Receive Date: 20120806
  Receipt Date: 20120727
  Transmission Date: 20120928
  Serious: Yes (Other)
  Sender: FDA-Public Use
  Company Number: US-SANOFI-AVENTIS-2012SA054108

PATIENT
  Age: 85 Year
  Sex: Female

DRUGS (4)
  1. MULTAQ [Suspect]
     Indication: ATRIAL FIBRILLATION
     Route: 048
     Dates: start: 20100101
  2. METOPROLOL TARTRATE [Suspect]
     Indication: BLOOD PRESSURE
     Route: 048
     Dates: start: 20080101
  3. PREDNISONE [Concomitant]
  4. OTHER RESPIRATORY SYSTEM PRODUCTS [Concomitant]

REACTIONS (2)
  - DIZZINESS [None]
  - HYPOTENSION [None]
